FAERS Safety Report 6294050-0 (Version None)
Quarter: 2009Q3

REPORT INFORMATION
  Report Type: 
  Country: None (occurrence: None)
  Receive Date: 20090803
  Receipt Date: 20080811
  Transmission Date: 20100115
  Serious: No
  Sender: FDA-Public Use
  Company Number: A0742547A

PATIENT
  Age: 48 Year
  Sex: Male

DRUGS (1)
  1. NICORETTE [Suspect]
     Dates: start: 20080811, end: 20080812

REACTIONS (5)
  - ANGER [None]
  - IMPATIENCE [None]
  - PRODUCT QUALITY ISSUE [None]
  - TREMOR [None]
  - WITHDRAWAL SYNDROME [None]
